FAERS Safety Report 21880547 (Version 1)
Quarter: 2023Q1

REPORT INFORMATION
  Report Type: Spontaneous
  Country: DE (occurrence: DE)
  Receive Date: 20230118
  Receipt Date: 20230118
  Transmission Date: 20230418
  Serious: Yes (Hospitalization, Other)
  Sender: FDA-Public Use
  Company Number: DE-KRKA-DE2022K15167SPO

PATIENT
  Age: 16 Year
  Sex: Male
  Weight: 58 kg

DRUGS (3)
  1. DICLOFENAC [Suspect]
     Active Substance: DICLOFENAC
     Indication: Product used for unknown indication
     Dosage: 3 DF, SINGLE DOSE, TOTAL
     Route: 048
     Dates: start: 20221123, end: 20221123
  2. SILDENAFIL CITRATE [Suspect]
     Active Substance: SILDENAFIL CITRATE
     Indication: Product used for unknown indication
     Dosage: 100 MG, 1 TOTAL, SINGLE DOSE
     Route: 048
     Dates: start: 20221123, end: 20221123
  3. NALOXONE HYDROCHLORIDE\TILIDINE HYDROCHLORIDE [Suspect]
     Active Substance: NALOXONE HYDROCHLORIDE\TILIDINE HYDROCHLORIDE
     Indication: Product used for unknown indication
     Dosage: 3 DF, SINGLE DOSE
     Route: 048
     Dates: start: 20221123, end: 20221123

REACTIONS (4)
  - Fatigue [Unknown]
  - Hypersomnia [Unknown]
  - Tremor [Unknown]
  - Drug abuse [Unknown]
